FAERS Safety Report 5093501-7 (Version None)
Quarter: 2006Q3

REPORT INFORMATION
  Report Type: 
  Country: None (occurrence: None)
  Receive Date: 20060731
  Receipt Date: 20060515
  Transmission Date: 20061208
  Serious: Yes (Hospitalization)
  Sender: FDA-Public Use
  Company Number: 224994

PATIENT
  Age: 55 Year
  Sex: Female
  Weight: 75.3 kg

DRUGS (2)
  1. HERCEPTIN [Suspect]
     Indication: BREAST CANCER METASTATIC
     Dosage: 400 MG, INTRAVENOUS
     Route: 042
     Dates: start: 20060413, end: 20060512
  2. PACLITAXEL [Concomitant]

REACTIONS (3)
  - CHEST PAIN [None]
  - DYSPNOEA [None]
  - EJECTION FRACTION DECREASED [None]
